FAERS Safety Report 4908952-8 (Version None)
Quarter: 2006Q1

REPORT INFORMATION
  Report Type: 
  Country: None (occurrence: None)
  Receive Date: 20060209
  Receipt Date: 20060130
  Transmission Date: 20060701
  Serious: Yes (Other)
  Sender: FDA-Public Use
  Company Number: 2006013571

PATIENT
  Age: 20 Year
  Sex: Male
  Weight: 79.3795 kg

DRUGS (2)
  1. BENADRYL [Suspect]
     Dosage: 6 TABLETS ONCE, ORAL
     Route: 048
     Dates: start: 20060130, end: 20060130
  2. ETHANOL (ETHANOL) [Suspect]
     Dosage: ORAL
     Route: 048

REACTIONS (3)
  - ALCOHOL USE [None]
  - LOSS OF CONSCIOUSNESS [None]
  - POOR QUALITY DRUG ADMINISTERED [None]
